FAERS Safety Report 7643599-4 (Version None)
Quarter: 2011Q3

REPORT INFORMATION
  Report Type: 
  Country: None (occurrence: None)
  Receive Date: 20110722
  Receipt Date: 20110719
  Transmission Date: 20111222
  Serious: Yes (Life-Threatening, Hospitalization, Other)
  Sender: FDA-Public Use
  Company Number: 201110898

PATIENT
  Age: 47 Year
  Sex: Female

DRUGS (1)
  1. LIORESAL [Suspect]
     Indication: MUSCLE SPASTICITY
     Dosage: MCG DAILY, INTRATHECAL-SEE B5

REACTIONS (4)
  - CARDIO-RESPIRATORY ARREST [None]
  - LETHARGY [None]
  - RESPIRATORY DEPRESSION [None]
  - OVERDOSE [None]
